FAERS Safety Report 4700568-1 (Version None)
Quarter: 2005Q2

REPORT INFORMATION
  Report Type: 
  Country: None (occurrence: None)
  Receive Date: 20050627
  Receipt Date: 20050627
  Transmission Date: 20051028
  Serious: No
  Sender: FDA-Public Use
  Company Number: None

PATIENT
  Sex: Male
  Weight: 56.6 kg

DRUGS (2)
  1. FLUOROURACIL [Suspect]
     Dosage: 200 MG/M2/DAY CONTINUOUS INFUSION WITH RT
     Route: 042
     Dates: start: 20050404
  2. RADIATION [Suspect]
     Dosage: 3780 CGY
     Dates: start: 20050502, end: 20050531

REACTIONS (5)
  - BLOOD CULTURE POSITIVE [None]
  - CENTRAL LINE INFECTION [None]
  - NAUSEA [None]
  - STOMATITIS [None]
  - WEIGHT DECREASED [None]
